FAERS Safety Report 4416665-4 (Version None)
Quarter: 2004Q3

REPORT INFORMATION
  Report Type: 
  Country: None (occurrence: None)
  Receive Date: 20040802
  Receipt Date: 20040716
  Transmission Date: 20050211
  Serious: Yes (Hospitalization)
  Sender: FDA-Public Use
  Company Number: A-US2003-02577

PATIENT
  Age: 60 Year
  Sex: Female

DRUGS (21)
  1. TRACLEER [Suspect]
     Indication: PULMONARY HYPERTENSION
     Dosage: 62.5 MG, BID; SEE IMAGE
     Dates: start: 20020918, end: 20021001
  2. TRACLEER [Suspect]
     Indication: PULMONARY HYPERTENSION
     Dosage: 62.5 MG, BID; SEE IMAGE
     Dates: start: 20021001, end: 20030428
  3. TRACLEER [Suspect]
     Indication: PULMONARY HYPERTENSION
     Dosage: 62.5 MG, BID; SEE IMAGE
     Dates: start: 20030601, end: 20040518
  4. COUMADIN [Concomitant]
  5. OXYGEN (OXYGEN) [Concomitant]
  6. DIGOXIN [Concomitant]
  7. LASIX [Concomitant]
  8. PREDNISONE [Concomitant]
  9. LISINOPRIL [Concomitant]
  10. EVISTA [Concomitant]
  11. BENZONATATE (BENZONATATE) [Concomitant]
  12. COZAAR [Concomitant]
  13. ARALEN (CHLOROQUINE PHOSPHATE) [Concomitant]
  14. ALDACTONE [Concomitant]
  15. DILANTIN [Concomitant]
  16. MAGNESIUM OXIDE (MAGNESIUM OXIDE) [Concomitant]
  17. SPIRONOLACTONE [Concomitant]
  18. SERTRALINE HYDROCHLORIDE [Concomitant]
  19. TRIAMCINOLONE [Concomitant]
  20. TRAZODONE HCL [Concomitant]
  21. RALOXIFENE (RALOXIFENE) [Concomitant]

REACTIONS (18)
  - AGITATION [None]
  - CARDIAC FAILURE CONGESTIVE [None]
  - CARDIO-RESPIRATORY ARREST [None]
  - CONVULSION [None]
  - DISEASE PROGRESSION [None]
  - DRUG LEVEL BELOW THERAPEUTIC [None]
  - FAECAL INCONTINENCE [None]
  - GAMMA-GLUTAMYLTRANSFERASE INCREASED [None]
  - HYPOXIA [None]
  - INTERNATIONAL NORMALISED RATIO INCREASED [None]
  - OEDEMA PERIPHERAL [None]
  - PULMONARY HYPERTENSION [None]
  - PULMONARY OEDEMA [None]
  - RESPIRATORY DEPRESSION [None]
  - SARCOIDOSIS [None]
  - SYNCOPE [None]
  - URINARY TRACT INFECTION [None]
  - WEIGHT INCREASED [None]
